FAERS Safety Report 9111567 (Version 1)
Quarter: 2013Q1

REPORT INFORMATION
  Report Type: Spontaneous
  Country: US (occurrence: US)
  Receive Date: 20130219
  Receipt Date: 20130219
  Transmission Date: 20140127
  Serious: No
  Sender: FDA-Public Use
  Company Number: US-BRISTOL-MYERS SQUIBB COMPANY-16320178

PATIENT
  Age: 57 Year
  Sex: Female

DRUGS (2)
  1. ORENCIA [Suspect]
     Indication: RHEUMATOID ARTHRITIS
     Dosage: 26JAN10 IV,ON 30MAR12 SQ
     Route: 058
     Dates: start: 20100126
  2. PRILOSEC [Concomitant]

REACTIONS (1)
  - Gingival ulceration [Unknown]
